FAERS Safety Report 10879017 (Version 1)
Quarter: 2015Q1

REPORT INFORMATION
  Report Type: Spontaneous
  Country: US (occurrence: None)
  Receive Date: 20150224
  Receipt Date: 20150224
  Transmission Date: 20150721
  Serious: Yes (Hospitalization)
  Sender: FDA-Public Use
  Company Number: None

PATIENT
  Age: 54 Year
  Sex: Female
  Weight: 73.84 kg

DRUGS (12)
  1. SOFOSBUVIR 400 [Suspect]
     Active Substance: SOFOSBUVIR
     Indication: HEPATITIS C
     Dosage: 400, 1X DAILY, ORAL
     Route: 048
     Dates: start: 20140327, end: 20140618
  2. LACTULOSE. [Concomitant]
     Active Substance: LACTULOSE
  3. FUROSEMIDE. [Concomitant]
     Active Substance: FUROSEMIDE
  4. SIMEPREVIR 150 [Suspect]
     Active Substance: SIMEPREVIR
     Indication: HEPATITIS C
     Dosage: 150, 1X DAILY, ORAL
     Route: 048
     Dates: start: 20140327, end: 20140618
  5. MAGNESIUM OXIDE. [Concomitant]
     Active Substance: MAGNESIUM OXIDE
  6. SIMVASTIN [Concomitant]
     Active Substance: SIMVASTATIN
  7. NADOLOL. [Concomitant]
     Active Substance: NADOLOL
  8. RIFAXIMIN [Concomitant]
     Active Substance: RIFAXIMIN
  9. INDERAL [Concomitant]
     Active Substance: PROPRANOLOL HYDROCHLORIDE
  10. SPIRONOLACTONE. [Concomitant]
     Active Substance: SPIRONOLACTONE
  11. ASPIRIN ??? [Concomitant]
  12. CALCIUM CARBONATE W/ VITAMIN D [Concomitant]

REACTIONS (2)
  - Hepatic hydrothorax [None]
  - Ascites [None]
